FAERS Safety Report 9727061 (Version 4)
Quarter: 2014Q1

REPORT INFORMATION
  Report Type: Report from Study
  Country: JP (occurrence: JP)
  Receive Date: 20131203
  Receipt Date: 20140313
  Transmission Date: 20141002
  Serious: Yes (Death, Other)
  Sender: FDA-Public Use
  Company Number: JP-SA-THYM-1003935

PATIENT
  Age: 18 Year
  Sex: Male
  Weight: 56 kg

DRUGS (8)
  1. THYMOGLOBULINE [Suspect]
     Indication: BONE MARROW CONDITIONING REGIMEN
     Dosage: 112.5 MG, QD
     Route: 065
     Dates: start: 20120409, end: 20120410
  2. FLUDARA [Suspect]
     Indication: ACUTE LYMPHOCYTIC LEUKAEMIA
     Dosage: UNK
     Route: 065
     Dates: start: 20120405, end: 20120409
  3. ALKERAN [Suspect]
     Indication: ACUTE LYMPHOCYTIC LEUKAEMIA
     Dosage: UNK
     Route: 065
     Dates: start: 20120410, end: 20120410
  4. PROGRAF [Suspect]
     Indication: PROPHYLAXIS AGAINST GRAFT VERSUS HOST DISEASE
     Dosage: UNK
     Route: 065
     Dates: start: 20120411, end: 20121008
  5. PREDONINE [Suspect]
     Indication: ACUTE LYMPHOCYTIC LEUKAEMIA
     Dosage: UNK
     Route: 065
  6. PACETCOOL [Concomitant]
     Indication: ANTIBIOTIC PROPHYLAXIS
     Dosage: UNK
     Dates: start: 20120405, end: 20120414
  7. FUNGUARD [Concomitant]
     Indication: ANTIFUNGAL PROPHYLAXIS
     Dosage: UNK
     Dates: start: 20120405, end: 20120630
  8. ACICLOVIR [Concomitant]
     Indication: ANTIVIRAL PROPHYLAXIS
     Dosage: UNK
     Dates: start: 20120331, end: 20121013

REACTIONS (7)
  - Acute graft versus host disease in skin [Recovered/Resolved]
  - Acute lymphocytic leukaemia recurrent [Fatal]
  - Febrile neutropenia [Recovered/Resolved]
  - Oedema peripheral [Recovered/Resolved]
  - Oral infection [Recovered/Resolved]
  - Cytomegalovirus viraemia [Recovered/Resolved]
  - Cytomegalovirus viraemia [Recovered/Resolved]
